FAERS Safety Report 5013404-3 (Version None)
Quarter: 2006Q2

REPORT INFORMATION
  Report Type: 
  Country: None (occurrence: None)
  Receive Date: 20060530
  Receipt Date: 20060518
  Transmission Date: 20061013
  Serious: Yes (Hospitalization)
  Sender: FDA-Public Use
  Company Number: FR-BRISTOL-MYERS SQUIBB COMPANY-13388996

PATIENT
  Age: 69 Year
  Sex: Male

DRUGS (4)
  1. FOZIRETIC TABS [Suspect]
     Indication: CARDIAC FAILURE
     Dosage: DURATION: YEARS
     Route: 048
     Dates: end: 20060422
  2. ALDACTONE [Interacting]
     Indication: CARDIAC FAILURE
     Route: 048
     Dates: start: 20050323, end: 20060422
  3. FUROSEMIDE [Concomitant]
     Route: 048
  4. CARDENSIEL [Concomitant]
     Route: 048

REACTIONS (3)
  - DRUG INTERACTION [None]
  - HYPERKALAEMIA [None]
  - MALAISE [None]
